FAERS Safety Report 5333471-7 (Version None)
Quarter: 2007Q2

REPORT INFORMATION
  Report Type: 
  Country: None (occurrence: None)
  Receive Date: 20070522
  Receipt Date: 20070522
  Transmission Date: 20071010
  Serious: No
  Sender: FDA-Public Use
  Company Number: None

PATIENT
  Sex: Female
  Weight: 63.9 kg

DRUGS (3)
  1. G-CSF [Suspect]
     Indication: HODGKIN'S DISEASE RECURRENT
     Dosage: 5 MCG SQ
     Route: 058
     Dates: start: 20070326, end: 20070430
  2. VINORELBINE [Concomitant]
  3. GEMCITABINE [Concomitant]

REACTIONS (5)
  - ERYTHEMA [None]
  - INFLAMMATION [None]
  - OEDEMA PERIPHERAL [None]
  - PAIN IN EXTREMITY [None]
  - RASH [None]
